FAERS Safety Report 16744946 (Version 2)
Quarter: 2019Q4

REPORT INFORMATION
  Report Type: Spontaneous
  Country: US (occurrence: US)
  Receive Date: 20190827
  Receipt Date: 20191122
  Transmission Date: 20200122
  Serious: Yes (Other)
  Sender: FDA-Public Use
  Company Number: US-009507513-1908USA007768

PATIENT
  Sex: Male

DRUGS (1)
  1. KEYTRUDA [Suspect]
     Active Substance: PEMBROLIZUMAB
     Indication: COLORECTAL ADENOCARCINOMA
     Dosage: UNK

REACTIONS (2)
  - Off label use [Unknown]
  - Carcinoembryonic antigen increased [Recovered/Resolved]
